FAERS Safety Report 23701638 (Version 1)
Quarter: 2024Q2

REPORT INFORMATION
  Report Type: Spontaneous
  Country: US (occurrence: None)
  Receive Date: 20240402
  Receipt Date: 20240402
  Transmission Date: 20240717
  Serious: Yes (Hospitalization)
  Sender: FDA-Public Use
  Company Number: None

PATIENT
  Age: 68 Year
  Sex: Male
  Weight: 67 kg

DRUGS (8)
  1. YESCARTA [Suspect]
     Active Substance: AXICABTAGENE CILOLEUCEL
     Indication: Lymphoma
     Dosage: 68 ML ONCE INTRAVENOUS DRIP
     Route: 041
     Dates: start: 20231219
  2. ACTEMRA [Concomitant]
     Active Substance: TOCILIZUMAB
  3. methylPREDNISolone (SOLU-Medrol) [Concomitant]
  4. ANAKINRA [Concomitant]
     Active Substance: ANAKINRA
  5. CEFEPIME [Concomitant]
     Active Substance: CEFEPIME HYDROCHLORIDE
  6. MEROPENEM [Concomitant]
     Active Substance: MEROPENEM
  7. VANCOMYCIN [Concomitant]
     Active Substance: VANCOMYCIN
  8. CASPOFUNGIN [Concomitant]
     Active Substance: CASPOFUNGIN

REACTIONS (7)
  - Lymphocyte adoptive therapy [None]
  - Cytokine release syndrome [None]
  - Physical deconditioning [None]
  - Cytomegalovirus viraemia [None]
  - Pancreatitis acute [None]
  - Candida infection [None]
  - Hypoxia [None]

NARRATIVE: CASE EVENT DATE: 20231219
